FAERS Safety Report 7114122-8 (Version None)
Quarter: 2010Q4

REPORT INFORMATION
  Report Type: 
  Country: None (occurrence: None)
  Receive Date: 20101119
  Receipt Date: 20101112
  Transmission Date: 20110411
  Serious: Yes (Hospitalization, Other)
  Sender: FDA-Public Use
  Company Number: BR-SANOFI-AVENTIS-2010SA069200

PATIENT
  Age: 54 Year
  Sex: Male
  Weight: 71 kg

DRUGS (6)
  1. LANTUS SOLOSTAR [Suspect]
     Indication: TYPE 2 DIABETES MELLITUS
     Route: 058
     Dates: start: 20101111
  2. LANTUS SOLOSTAR [Suspect]
     Route: 058
     Dates: start: 20101111
  3. SOLOSTAR [Suspect]
     Dates: start: 20101111
  4. METFORMIN HCL [Concomitant]
     Route: 048
     Dates: start: 20020101
  5. GLIMEPIRIDE [Concomitant]
     Route: 048
     Dates: start: 20020101
  6. NOVOLIN 70/30 [Concomitant]
     Route: 058

REACTIONS (8)
  - CHILLS [None]
  - COMA [None]
  - DRUG INEFFECTIVE [None]
  - FEELING ABNORMAL [None]
  - HYPERGLYCAEMIA [None]
  - PRODUCT QUALITY ISSUE [None]
  - TREMOR [None]
  - WEIGHT DECREASED [None]
